FAERS Safety Report 15035117 (Version 3)
Quarter: 2019Q1

REPORT INFORMATION
  Report Type: Spontaneous
  Country: US (occurrence: US)
  Receive Date: 20180620
  Receipt Date: 20190226
  Transmission Date: 20190417
  Serious: Yes (Other)
  Sender: FDA-Public Use
  Company Number: US-PFIZER INC-2018249406

PATIENT
  Age: 42 Year
  Sex: Female

DRUGS (1)
  1. IBRANCE [Suspect]
     Active Substance: PALBOCICLIB
     Dosage: 125 MG, CYCLIC (1 CAP PO DAILY X 21 D, THEN 7 DAYS OFF)
     Route: 048

REACTIONS (7)
  - Neuropathy peripheral [Not Recovered/Not Resolved]
  - Lymphoedema [Unknown]
  - Blister [Unknown]
  - Skin fissures [Recovering/Resolving]
  - Skin exfoliation [Unknown]
  - Pain in extremity [Unknown]
  - Memory impairment [Unknown]
